FAERS Safety Report 20938853 (Version 1)
Quarter: 2022Q2

REPORT INFORMATION
  Report Type: Spontaneous
  Country: US (occurrence: None)
  Receive Date: 20220609
  Receipt Date: 20220609
  Transmission Date: 20220720
  Serious: No
  Sender: FDA-Public Use
  Company Number: 2022A214157

PATIENT
  Sex: Female
  Weight: 56.7 kg

DRUGS (2)
  1. SYMLIN [Suspect]
     Active Substance: PRAMLINTIDE ACETATE
     Indication: Diabetes mellitus
     Route: 058
     Dates: start: 2018, end: 2022
  2. SYMLIN [Suspect]
     Active Substance: PRAMLINTIDE ACETATE
     Indication: Diabetes mellitus
     Route: 058
     Dates: start: 2022

REACTIONS (5)
  - Blood glucose abnormal [Unknown]
  - Blood glucose increased [Unknown]
  - Administration site pain [Unknown]
  - Incorrect dose administered by device [Unknown]
  - Product dose omission issue [Unknown]
